FAERS Safety Report 4724562-X (Version None)
Quarter: 2005Q3

REPORT INFORMATION
  Report Type: 
  Country: None (occurrence: None)
  Receive Date: 20050719
  Receipt Date: 20050719
  Transmission Date: 20060218
  Serious: Yes (Death)
  Sender: FDA-Public Use
  Company Number: None

PATIENT
  Age: 60 Year
  Sex: Female
  Weight: 86.1834 kg

DRUGS (2)
  1. DURAGESIC-75 [Suspect]
     Indication: BACK DISORDER
     Dosage: 75 MCG Q 72 HRS , SKIN
     Dates: start: 20050520, end: 20050613
  2. DURAGESIC-75 [Suspect]
     Indication: BACK DISORDER
     Dosage: 75 MCG Q 72 HRS , SKIN
     Dates: start: 20050620, end: 20050621

REACTIONS (2)
  - DYSPNOEA [None]
  - LOSS OF CONSCIOUSNESS [None]
